FAERS Safety Report 14101728 (Version 3)
Quarter: 2018Q1

REPORT INFORMATION
  Report Type: Spontaneous
  Country: IT (occurrence: IT)
  Receive Date: 20171018
  Receipt Date: 20180305
  Transmission Date: 20180508
  Serious: Yes (Hospitalization)
  Sender: FDA-Public Use
  Company Number: IT-AUROBINDO-AUR-APL-2017-42186

PATIENT
  Age: 45 Year
  Sex: Male

DRUGS (4)
  1. PARACETAMOL [Suspect]
     Active Substance: ACETAMINOPHEN
     Indication: PYREXIA
     Dosage: 1000 MG, DAILY
     Route: 048
     Dates: start: 20170901, end: 20170920
  2. ETILTOX [Suspect]
     Active Substance: DISULFIRAM
     Indication: ALCOHOLISM
     Dosage: 200 MG, DAILY
     Route: 048
     Dates: start: 20170825, end: 20170924
  3. VALSARTAN. [Concomitant]
     Active Substance: VALSARTAN
     Indication: PRODUCT USED FOR UNKNOWN INDICATION
     Dosage: 80 MG, UNK
     Route: 048
  4. MEPRAL                             /00661201/ [Concomitant]
     Active Substance: OMEPRAZOLE
     Indication: PRODUCT USED FOR UNKNOWN INDICATION
     Dosage: 20 MG, UNK
     Route: 065

REACTIONS (4)
  - Hepatitis acute [Unknown]
  - Hyperbilirubinaemia [Unknown]
  - Alanine aminotransferase increased [Unknown]
  - Aspartate aminotransferase increased [Unknown]

NARRATIVE: CASE EVENT DATE: 20170924
